FAERS Safety Report 9832517 (Version 1)
Quarter: 2014Q1

REPORT INFORMATION
  Report Type: Spontaneous
  Country: FR (occurrence: FR)
  Receive Date: 20140121
  Receipt Date: 20140121
  Transmission Date: 20141002
  Serious: Yes (Life-Threatening, Hospitalization, Other)
  Sender: FDA-Public Use
  Company Number: FR-PFIZER INC-2014012076

PATIENT
  Age: 49 Year
  Sex: Female
  Weight: 50 kg

DRUGS (13)
  1. SOLU-MEDROL [Suspect]
     Indication: TRANSPLANT REJECTION
     Dosage: 500 MG, 1X/DAY
     Route: 040
     Dates: start: 20131025, end: 20131027
  2. NORADRENALINE [Suspect]
     Dosage: 0.4 MG EVERY HOURS
     Dates: start: 20131022, end: 20131024
  3. KAYEXALATE [Suspect]
     Indication: HYPERKALAEMIA
     Dosage: 3.3 G, 4X/DAY
     Route: 048
     Dates: start: 20131022, end: 20131023
  4. LEVOTHYROX [Concomitant]
  5. SPIRIVA [Concomitant]
  6. BRONCHODUAL [Concomitant]
  7. ONBREZ [Concomitant]
  8. EUPHYLLINE [Concomitant]
  9. FLUOXETINE [Concomitant]
  10. TIENAM [Concomitant]
     Indication: ENTEROBACTER PNEUMONIA
  11. AMIKACIN [Concomitant]
     Indication: ENTEROBACTER PNEUMONIA
  12. PIPERACILLIN [Concomitant]
     Indication: ENTEROBACTER PNEUMONIA
  13. LASILIX [Concomitant]
     Indication: ENTEROBACTER PNEUMONIA
     Dosage: HIGH DOSES

REACTIONS (4)
  - Colitis ischaemic [Recovered/Resolved with Sequelae]
  - Large intestine perforation [Recovered/Resolved with Sequelae]
  - Septic shock [Recovered/Resolved with Sequelae]
  - Necrotising colitis [Unknown]
